FAERS Safety Report 9805837 (Version 1)
Quarter: 2014Q1

REPORT INFORMATION
  Report Type: Spontaneous
  Country: US (occurrence: None)
  Receive Date: 20140108
  Receipt Date: 20140108
  Transmission Date: 20141002
  Serious: Yes (Hospitalization)
  Sender: FDA-Public Use
  Company Number: None

PATIENT
  Age: 45 Year
  Sex: Male
  Weight: 98.2 kg

DRUGS (1)
  1. LISINOPRIL [Suspect]
     Indication: HYPERTENSION
     Route: 048
     Dates: start: 20130702, end: 20131028

REACTIONS (9)
  - Chest pain [None]
  - Dizziness [None]
  - Hypertension [None]
  - Musculoskeletal pain [None]
  - Anxiety [None]
  - Pain in extremity [None]
  - Hypoaesthesia [None]
  - Muscle tightness [None]
  - Cervical radiculopathy [None]
